FAERS Safety Report 16466752 (Version 1)
Quarter: 2019Q2

REPORT INFORMATION
  Report Type: Report from Study
  Country: JP (occurrence: JP)
  Receive Date: 20190623
  Receipt Date: 20190623
  Transmission Date: 20190711
  Serious: Yes (Other)
  Sender: FDA-Public Use
  Company Number: JP-BEH-2019102359

PATIENT
  Age: 48 Year
  Sex: Male
  Weight: 60 kg

DRUGS (11)
  1. IDELVION [Suspect]
     Active Substance: COAGULATION FACTOR IX RECOMBINANT HUMAN
     Dosage: 4000 IU, 1 DAY
     Route: 042
     Dates: start: 20190304, end: 20190304
  2. IDELVION [Suspect]
     Active Substance: COAGULATION FACTOR IX RECOMBINANT HUMAN
     Dosage: 4000 IU, 1 WEEK
     Route: 042
     Dates: start: 20190312, end: 20190409
  3. IDELVION [Suspect]
     Active Substance: COAGULATION FACTOR IX RECOMBINANT HUMAN
     Indication: FACTOR IX DEFICIENCY
     Dosage: 2000 IU, 1 WEEK
     Route: 042
     Dates: start: 20181120, end: 20190205
  4. IDELVION [Suspect]
     Active Substance: COAGULATION FACTOR IX RECOMBINANT HUMAN
     Dosage: 4000 IU, 1 DAY
     Route: 042
     Dates: start: 20190419, end: 20190419
  5. IDELVION [Suspect]
     Active Substance: COAGULATION FACTOR IX RECOMBINANT HUMAN
     Indication: HAEMORRHAGIC DIATHESIS
     Dosage: 4000 IU, 1 DAY
     Route: 042
     Dates: start: 20181112, end: 20181112
  6. LOXOPROFEN SODIUM [Concomitant]
     Active Substance: LOXOPROFEN SODIUM
     Route: 065
  7. STOCRIN [Concomitant]
     Active Substance: EFAVIRENZ
     Route: 048
  8. EPZICOM [Concomitant]
     Active Substance: ABACAVIR SULFATE\LAMIVUDINE
     Route: 048
  9. IDELVION [Suspect]
     Active Substance: COAGULATION FACTOR IX RECOMBINANT HUMAN
     Dosage: 2000 IU, 1 DAY
     Route: 042
     Dates: start: 20190212, end: 20190212
  10. IDELVION [Suspect]
     Active Substance: COAGULATION FACTOR IX RECOMBINANT HUMAN
     Dosage: 4000 IU, 1 DAY
     Route: 042
     Dates: start: 20190429, end: 20190429
  11. IDELVION [Suspect]
     Active Substance: COAGULATION FACTOR IX RECOMBINANT HUMAN
     Dosage: 4000 IU, 1 DAY
     Route: 042
     Dates: start: 20190218, end: 20190218

REACTIONS (1)
  - Haemarthrosis [Recovering/Resolving]

NARRATIVE: CASE EVENT DATE: 20190218
